FAERS Safety Report 6772127-0 (Version None)
Quarter: 2010Q2

REPORT INFORMATION
  Report Type: 
  Country: None (occurrence: None)
  Receive Date: 20100616
  Receipt Date: 20100609
  Transmission Date: 20101027
  Serious: Yes (Hospitalization)
  Sender: FDA-Public Use
  Company Number: B0659689A

PATIENT
  Sex: Female

DRUGS (4)
  1. FORTUM [Suspect]
     Indication: ENDOCARDITIS
     Dosage: 4G PER DAY
     Route: 065
     Dates: start: 20081030, end: 20081212
  2. TRIFLUCAN [Suspect]
     Dosage: 400MG PER DAY
     Route: 048
     Dates: end: 20081212
  3. PHENYTOIN [Suspect]
     Indication: EPILEPSY
     Route: 065
     Dates: start: 20081212
  4. AMIKIN [Concomitant]
     Indication: ENDOCARDITIS
     Route: 065
     Dates: start: 20081030

REACTIONS (8)
  - ALTERED STATE OF CONSCIOUSNESS [None]
  - CONDITION AGGRAVATED [None]
  - DIZZINESS [None]
  - ENCEPHALOPATHY [None]
  - EPILEPSY [None]
  - OVERDOSE [None]
  - SOMNOLENCE [None]
  - TREMOR [None]
